FAERS Safety Report 9173929 (Version 1)
Quarter: 2013Q1

REPORT INFORMATION
  Report Type: Spontaneous
  Country: US (occurrence: US)
  Receive Date: 20130320
  Receipt Date: 20130320
  Transmission Date: 20140127
  Serious: No
  Sender: FDA-Public Use
  Company Number: US-GALDERMA-US-GDP-12413367

PATIENT
  Age: 51 None
  Sex: Female
  Weight: 62 kg

DRUGS (9)
  1. VECTICAL [Suspect]
     Indication: PSORIASIS
     Route: 061
     Dates: start: 20111109, end: 20111230
  2. VECTICAL [Suspect]
     Route: 061
     Dates: start: 2012, end: 20120125
  3. VECTICAL [Suspect]
     Route: 061
     Dates: start: 20120202, end: 20120214
  4. VECTICAL [Suspect]
  5. TACLONEX [Suspect]
     Indication: PSORIASIS
     Route: 061
     Dates: start: 20111111, end: 20111220
  6. TACLONEX [Suspect]
     Route: 061
     Dates: start: 20120114, end: 20120202
  7. TACLONEX [Suspect]
     Route: 061
     Dates: start: 20120214
  8. ESTRADIOL [Concomitant]
     Indication: HORMONE REPLACEMENT THERAPY
     Route: 048
     Dates: start: 200708
  9. MEDROXY PR AC [Concomitant]
     Indication: HORMONE REPLACEMENT THERAPY
     Route: 048

REACTIONS (2)
  - Diarrhoea [Recovered/Resolved]
  - Weight decreased [Recovering/Resolving]
